FAERS Safety Report 9177304 (Version 2)
Quarter: 2013Q2

REPORT INFORMATION
  Report Type: Spontaneous
  Country: US (occurrence: US)
  Receive Date: 20120531
  Receipt Date: 20130429
  Transmission Date: 20140414
  Serious: Yes (Other)
  Sender: FDA-Public Use
  Company Number: US201110004566

PATIENT
  Age: 64 Year
  Sex: Female

DRUGS (10)
  1. BYETTA PEN DISPOSABLE [Suspect]
     Dates: start: 20060817, end: 200902
  2. NORVASC [Concomitant]
  3. COREG [Concomitant]
  4. MULTIVITAMIN [Concomitant]
  5. LASIX [Concomitant]
  6. ZEMPLAR [Concomitant]
  7. ASPIRIN [Concomitant]
  8. SIMVASTATIN [Concomitant]
  9. LEVOTHYROXINE [Concomitant]
  10. AMLODIPINE [Concomitant]

REACTIONS (2)
  - Renal failure [Unknown]
  - Pancreatitis [Unknown]
